FAERS Safety Report 9851778 (Version 3)
Quarter: 2015Q1

REPORT INFORMATION
  Report Type: Report from Study
  Country: CH (occurrence: CH)
  Receive Date: 20140129
  Receipt Date: 20150109
  Transmission Date: 20150721
  Serious: Yes (Hospitalization)
  Sender: FDA-Public Use
  Company Number: CH-ROCHE-1303410

PATIENT
  Age: 63 Year
  Sex: Male

DRUGS (10)
  1. BACTRIM [Concomitant]
     Active Substance: SULFAMETHOXAZOLE\TRIMETHOPRIM
     Indication: PROPHYLAXIS
     Route: 065
     Dates: start: 20130807
  2. VINCRISTINE [Suspect]
     Active Substance: VINCRISTINE
     Indication: DIFFUSE LARGE B-CELL LYMPHOMA
     Dosage: ON 30/OCT/2013, MOST RECENT DOSE ( 2 MG) PRIOR TO ADVERSE EVENT WAS TAKEN.
     Route: 041
     Dates: start: 20130808
  3. FLUVASTATIN MEPHA [Concomitant]
     Indication: HYPERLIPIDAEMIA
     Route: 065
  4. CYCLOPHOSPHAMIDE. [Suspect]
     Active Substance: CYCLOPHOSPHAMIDE
     Indication: DIFFUSE LARGE B-CELL LYMPHOMA
     Dosage: ON 30/OCT/2013, MOST RECENT DOSE (1571.24 MG) PRIOR TO ADVERSE EVENT WAS TAKEN.
     Route: 042
     Dates: start: 20130808
  5. OBINUTUZUMAB [Suspect]
     Active Substance: OBINUTUZUMAB
     Indication: DIFFUSE LARGE B-CELL LYMPHOMA
     Dosage: ON 30/OCT/2013, MOST RECENT DOSE (CONCENTRATION: 4 MG/ML, VOLUME: 1000 ML) PRIOR TO ADVERSE EVENT WA
     Route: 042
     Dates: start: 20130808
  6. DOXORUBICIN [Suspect]
     Active Substance: DOXORUBICIN
     Indication: DIFFUSE LARGE B-CELL LYMPHOMA
     Dosage: ON 30/OCT/2013, MOST RECENT DOSE (104.75 MG) PRIOR TO ADVERSE EVENT WAS TAKEN.
     Route: 042
     Dates: start: 20130808
  7. ASPIRIN. [Concomitant]
     Active Substance: ASPIRIN
     Indication: ABDOMINAL PAIN UPPER
     Route: 065
  8. PREDNISONE. [Suspect]
     Active Substance: PREDNISONE
     Indication: DIFFUSE LARGE B-CELL LYMPHOMA
     Dosage: ON 03/NOV/2013, MOST RECENT DOSE (100 MG) WAS TAKEN.
     Route: 065
     Dates: start: 20130808
  9. VALTREX [Concomitant]
     Active Substance: VALACYCLOVIR HYDROCHLORIDE
     Indication: PROPHYLAXIS
     Route: 065
     Dates: start: 20130807
  10. PANTOPRAZOLE [Concomitant]
     Active Substance: PANTOPRAZOLE SODIUM
     Indication: ABDOMINAL PAIN UPPER
     Route: 065

REACTIONS (1)
  - Febrile neutropenia [Recovered/Resolved]

NARRATIVE: CASE EVENT DATE: 20131111
